FAERS Safety Report 12089487 (Version 1)
Quarter: 2016Q1

REPORT INFORMATION
  Report Type: Spontaneous
  Country: US (occurrence: US)
  Receive Date: 20160218
  Receipt Date: 20160218
  Transmission Date: 20160526
  Serious: No
  Sender: FDA-Public Use
  Company Number: US-PERRIGO-15US011467

PATIENT
  Sex: Female

DRUGS (1)
  1. CETIRIZINE HYDROCHLORIDE. [Suspect]
     Active Substance: CETIRIZINE HYDROCHLORIDE
     Indication: ACCIDENTAL EXPOSURE TO PRODUCT
     Dosage: 20 MG, SINGLE
     Route: 048
     Dates: start: 20151029, end: 20151029

REACTIONS (1)
  - Wrong drug administered [Recovered/Resolved]

NARRATIVE: CASE EVENT DATE: 20151029
